FAERS Safety Report 23415966 (Version 2)
Quarter: 2024Q1

REPORT INFORMATION
  Report Type: Spontaneous
  Country: AU (occurrence: AU)
  Receive Date: 20240118
  Receipt Date: 20240206
  Transmission Date: 20240409
  Serious: Yes (Other)
  Sender: FDA-Public Use
  Company Number: AU-EXELIXIS-CABO-22057504

PATIENT
  Age: 64 Year
  Sex: Male

DRUGS (2)
  1. CABOMETYX [Suspect]
     Active Substance: CABOZANTINIB S-MALATE
     Indication: Metastatic renal cell carcinoma
     Dosage: UNK
     Route: 065
  2. CABOMETYX [Suspect]
     Active Substance: CABOZANTINIB S-MALATE
     Indication: Metastases to the mediastinum
     Dosage: UNK
     Route: 065

REACTIONS (2)
  - Immune-mediated enterocolitis [Unknown]
  - Malignant neoplasm progression [Unknown]
